FAERS Safety Report 9204910 (Version 1)
Quarter: 2013Q2

REPORT INFORMATION
  Report Type: Spontaneous
  Country: US (occurrence: US)
  Receive Date: 20130402
  Receipt Date: 20130402
  Transmission Date: 20140414
  Serious: Yes (Death, Hospitalization, Other)
  Sender: FDA-Public Use
  Company Number: US-ABBOTT-13P-163-1064671-00

PATIENT
  Age: 20 Year
  Sex: Female
  Weight: 51.4 kg

DRUGS (8)
  1. HUMIRA [Suspect]
     Indication: INFLAMMATORY BOWEL DISEASE
     Dates: start: 201101
  2. HUMIRA [Suspect]
  3. SYNTHROID [Concomitant]
     Indication: HYPOTHYROIDISM
  4. MIRALAX [Concomitant]
     Indication: CONSTIPATION
  5. CALCIUM [Concomitant]
     Indication: PRODUCT USED FOR UNKNOWN INDICATION
  6. VITAMIN D [Concomitant]
     Indication: PRODUCT USED FOR UNKNOWN INDICATION
  7. CLOBETASOL [Concomitant]
     Indication: ACUTE FEBRILE NEUTROPHILIC DERMATOSIS
  8. ZYRTEC [Concomitant]
     Indication: PRODUCT USED FOR UNKNOWN INDICATION

REACTIONS (27)
  - Cardio-respiratory arrest [Fatal]
  - Histoplasmosis disseminated [Recovering/Resolving]
  - Oedema peripheral [Fatal]
  - Respiratory distress [Recovering/Resolving]
  - Lung disorder [Recovering/Resolving]
  - Pyrexia [Recovered/Resolved]
  - Skin lesion [Recovering/Resolving]
  - Generalised oedema [Fatal]
  - Chest pain [Fatal]
  - Proteinuria [Fatal]
  - Hypertension [Fatal]
  - Hepatic vein thrombosis [Fatal]
  - Mental status changes [Fatal]
  - Organ failure [Fatal]
  - Enterobacter infection [Fatal]
  - Ventricular tachycardia [Fatal]
  - Ventricular fibrillation [Fatal]
  - Bacteraemia [Fatal]
  - Autoimmune disorder [Fatal]
  - Hyperammonaemia [Fatal]
  - Haemorrhage [Fatal]
  - Disseminated intravascular coagulation [Fatal]
  - Haemoglobin decreased [Fatal]
  - Platelet count decreased [Fatal]
  - Weight increased [Fatal]
  - Cough [Recovering/Resolving]
  - Off label use [Unknown]
